FAERS Safety Report 4472191-8 (Version None)
Quarter: 2004Q3

REPORT INFORMATION
  Report Type: 
  Country: None (occurrence: None)
  Receive Date: 20040917
  Receipt Date: 20040720
  Transmission Date: 20050211
  Serious: No
  Sender: FDA-Public Use
  Company Number: US-JNJFOC-20040706337

PATIENT
  Age: 34 Year
  Sex: Female
  Weight: 84.369 kg

DRUGS (1)
  1. ORTHO EVRA [Suspect]
     Indication: CONTRACEPTION
     Dosage: 1 DOSE(S), 3 IN 4 WEEK, TRANSDERMAL
     Route: 062
     Dates: end: 20040501

REACTIONS (7)
  - ALOPECIA [None]
  - FATIGUE [None]
  - FLUID RETENTION [None]
  - HYPOAESTHESIA [None]
  - INCREASED APPETITE [None]
  - MEMORY IMPAIRMENT [None]
  - WEIGHT INCREASED [None]
